FAERS Safety Report 4457510-0 (Version None)
Quarter: 2004Q3

REPORT INFORMATION
  Report Type: 
  Country: None (occurrence: None)
  Receive Date: 20040922
  Receipt Date: 20040908
  Transmission Date: 20050211
  Serious: Yes (Hospitalization, Other)
  Sender: FDA-Public Use
  Company Number: USA040977702

PATIENT
  Age: 50 Year
  Sex: Male
  Weight: 120 kg

DRUGS (2)
  1. HUMALOG-.(LISPRO) [Suspect]
  2. HUMULIN-HUMAN INSULIN (RDNR) UNKNOWN FORMULATION (HU [Suspect]
     Dosage: 95 U DAY

REACTIONS (3)
  - CHEST PAIN [None]
  - INJECTION SITE PAIN [None]
  - VISUAL DISTURBANCE [None]
